FAERS Safety Report 25485615 (Version 1)
Quarter: 2025Q2

REPORT INFORMATION
  Report Type: Spontaneous
  Country: US (occurrence: US)
  Receive Date: 20250626
  Receipt Date: 20250626
  Transmission Date: 20250717
  Serious: No
  Sender: PFIZER
  Company Number: US-PFIZER INC-202500107960

PATIENT
  Age: 20 Year
  Sex: Female

DRUGS (2)
  1. EUCRISA [Suspect]
     Active Substance: CRISABOROLE
     Indication: Dermatitis atopic
  2. EUCRISA [Suspect]
     Active Substance: CRISABOROLE

REACTIONS (3)
  - Off label use [Unknown]
  - Condition aggravated [Unknown]
  - Psoriasis [Unknown]
